FAERS Safety Report 25344766 (Version 1)
Quarter: 2025Q2

REPORT INFORMATION
  Report Type: Report from Study
  Country: US (occurrence: US)
  Receive Date: 20250522
  Receipt Date: 20250522
  Transmission Date: 20250716
  Serious: No
  Sender: SANDOZ
  Company Number: US-SANDOZ-SDZ2025US028511

PATIENT
  Age: 13 Year
  Sex: Male

DRUGS (4)
  1. OMNITROPE [Suspect]
     Active Substance: SOMATROPIN
     Dosage: 1.1 MG, QD (ONCE DAILY), 10 MG/1.5 ML, CARTRIDGE
     Route: 058
     Dates: start: 20250502
  2. OMNITROPE [Suspect]
     Active Substance: SOMATROPIN
     Dosage: 1.1 MG, QD (ONCE DAILY), 10 MG/1.5 ML, CARTRIDGE
     Route: 058
     Dates: start: 20250502
  3. OMNITROPE [Suspect]
     Active Substance: SOMATROPIN
     Indication: Product used for unknown indication
     Dosage: UNK, QD
     Route: 065
     Dates: start: 20250505
  4. OMNITROPE [Suspect]
     Active Substance: SOMATROPIN
     Indication: Product used for unknown indication
     Dosage: UNK, QD
     Route: 065
     Dates: start: 20250505

REACTIONS (3)
  - Injection site rash [Unknown]
  - Wrong technique in device usage process [Unknown]
  - Product storage error [Unknown]

NARRATIVE: CASE EVENT DATE: 20250505
